FAERS Safety Report 5712066-7 (Version None)
Quarter: 2008Q2

REPORT INFORMATION
  Report Type: 
  Country: None (occurrence: None)
  Receive Date: 20080418
  Receipt Date: 20080404
  Transmission Date: 20081010
  Serious: Yes (Hospitalization, Other)
  Sender: FDA-Public Use
  Company Number: 2008S1004370

PATIENT
  Age: 43 Year
  Sex: Male

DRUGS (3)
  1. ALBUTEROL [Suspect]
     Indication: ASTHMA
     Dosage: INHALATION
     Route: 055
  2. TRIAMCINOLONE ACETONIDE [Concomitant]
  3. ALPRAZOLAM [Concomitant]

REACTIONS (18)
  - ASPIRATION [None]
  - ASTHMA [None]
  - CHEST DISCOMFORT [None]
  - CHEST PAIN [None]
  - CHOKING SENSATION [None]
  - COUGH [None]
  - DYSPNOEA [None]
  - FOREIGN BODY TRAUMA [None]
  - ILL-DEFINED DISORDER [None]
  - LUNG DISORDER [None]
  - OBSTRUCTIVE AIRWAYS DISORDER [None]
  - PHARYNGEAL DISORDER [None]
  - PHARYNGEAL OEDEMA [None]
  - PNEUMOMEDIASTINUM [None]
  - PNEUMOTHORAX [None]
  - SENSATION OF FOREIGN BODY [None]
  - THROAT IRRITATION [None]
  - WHEEZING [None]
